FAERS Safety Report 4876073-9 (Version None)
Quarter: 2006Q1

REPORT INFORMATION
  Report Type: 
  Country: None (occurrence: None)
  Receive Date: 20060106
  Receipt Date: 20060106
  Transmission Date: 20060701
  Serious: Yes (Hospitalization, Other)
  Sender: FDA-Public Use
  Company Number: None

PATIENT
  Sex: Female
  Weight: 66.5 kg

DRUGS (3)
  1. DAUNORUBICIN [Suspect]
     Indication: ACUTE MYELOID LEUKAEMIA
     Dosage: SEE IMAGE
     Route: 042
     Dates: start: 20051216, end: 20051218
  2. CYTARABINE [Suspect]
     Dosage: SEE IMAGE
     Route: 042
     Dates: start: 20051216, end: 20051216
  3. GM-CSF [Suspect]
     Dosage: SEE IMAGE
     Dates: start: 20051230, end: 20060102

REACTIONS (4)
  - MUCOSAL INFLAMMATION [None]
  - PAIN [None]
  - PHARYNGITIS [None]
  - STOMATITIS [None]
